FAERS Safety Report 21308382 (Version 2)
Quarter: 2022Q4

REPORT INFORMATION
  Report Type: Spontaneous
  Country: JP (occurrence: JP)
  Receive Date: 20220908
  Receipt Date: 20221005
  Transmission Date: 20230113
  Serious: Yes (Other)
  Sender: FDA-Public Use
  Company Number: JP-BAXTER-2022BAX019127

PATIENT
  Age: 30 Year
  Sex: Female

DRUGS (4)
  1. CYCLOPHOSPHAMIDE [Suspect]
     Active Substance: CYCLOPHOSPHAMIDE
     Indication: Acute lymphocytic leukaemia
     Dosage: AT THE AGE OF 15
     Route: 065
  2. ETOPOSIDE [Suspect]
     Active Substance: ETOPOSIDE
     Indication: Acute lymphocytic leukaemia
     Dosage: AT THE AGE OF 15
     Route: 065
  3. PIRARUBICIN HYDROCHLORIDE [Suspect]
     Active Substance: PIRARUBICIN HYDROCHLORIDE
     Indication: Acute lymphocytic leukaemia
     Dosage: AT THE AGE OF 15
     Route: 065
  4. MITOXANTRONE HYDROCHLORIDE [Suspect]
     Active Substance: MITOXANTRONE HYDROCHLORIDE
     Indication: Acute lymphocytic leukaemia
     Dosage: AT THE AGE OF 15
     Route: 065

REACTIONS (3)
  - Rectal cancer [Unknown]
  - Ovarian cancer [Unknown]
  - Breast cancer [Unknown]
